FAERS Safety Report 4303131-X (Version None)
Quarter: 2004Q1

REPORT INFORMATION
  Report Type: 
  Country: None (occurrence: None)
  Receive Date: 20040224
  Receipt Date: 20040218
  Transmission Date: 20041129
  Serious: Yes (Other)
  Sender: FDA-Public Use
  Company Number: CA-ROCHE-359334

PATIENT
  Age: 42 Year
  Sex: Male

DRUGS (4)
  1. RIVOTRIL [Suspect]
     Indication: DRUG USE FOR UNKNOWN INDICATION
     Dosage: TAKEN AT BEDTIME
     Route: 048
     Dates: start: 20040107
  2. CELEXA [Concomitant]
  3. TYLENOL (CAPLET) [Concomitant]
  4. MOTRIN [Concomitant]

REACTIONS (1)
  - MUSCLE SPASMS [None]
